FAERS Safety Report 8942204 (Version 2)
Quarter: 2012Q4

REPORT INFORMATION
  Report Type: 
  Country: US (occurrence: None)
  Receive Date: 20121203
  Receipt Date: 20121220
  Transmission Date: 20130627
  Serious: Yes (Other)
  Sender: FDA-Public Use
  Company Number: None

PATIENT
  Age: 51 Year
  Sex: Female
  Weight: 99.34 kg

DRUGS (1)
  1. OMNIPAQUE [Suspect]
     Indication: LUMBAR DISC HERNIATION
     Dosage: 4     Epidural
     Route: 008
     Dates: start: 20120920, end: 20120920

REACTIONS (1)
  - Bronchitis [None]
